FAERS Safety Report 15280596 (Version 5)
Quarter: 2018Q4

REPORT INFORMATION
  Report Type: Report from Study
  Country: JP (occurrence: JP)
  Receive Date: 20180815
  Receipt Date: 20181231
  Transmission Date: 20190204
  Serious: Yes (Other)
  Sender: FDA-Public Use
  Company Number: JP-JNJFOC-20180810942

PATIENT
  Age: 70 Year
  Sex: Female
  Weight: 50.3 kg

DRUGS (16)
  1. DARZALEX [Suspect]
     Active Substance: DARATUMUMAB
     Indication: PLASMA CELL MYELOMA
     Route: 041
     Dates: start: 20180110
  2. DARZALEX [Suspect]
     Active Substance: DARATUMUMAB
     Indication: PLASMA CELL MYELOMA
     Dosage: ADMINISTERED AT RATE OF 100 MG/HOUR
     Route: 041
     Dates: start: 20171211, end: 20171211
  3. VELCADE [Suspect]
     Active Substance: BORTEZOMIB
     Indication: PLASMA CELL MYELOMA
     Route: 058
     Dates: start: 20171211, end: 20171221
  4. ACETAMINOPHEN. [Concomitant]
     Active Substance: ACETAMINOPHEN
     Indication: PREMEDICATION
     Route: 048
     Dates: start: 20171211
  5. DIPHENHYDRAMINE HYDROCHLORIDE. [Concomitant]
     Active Substance: DIPHENHYDRAMINE HYDROCHLORIDE
     Indication: PREMEDICATION
     Route: 048
     Dates: start: 20171211
  6. DARZALEX [Suspect]
     Active Substance: DARATUMUMAB
     Indication: PLASMA CELL MYELOMA
     Dosage: ADMINISTRATION RESUMED ON 11-DEC-2018 AT RATE OF 50 MG/HOUR
     Route: 041
     Dates: start: 20171211, end: 20171225
  7. VELCADE [Suspect]
     Active Substance: BORTEZOMIB
     Indication: PLASMA CELL MYELOMA
     Route: 058
     Dates: start: 20180110, end: 20180113
  8. DEXAMETHASONE ACETATE [Suspect]
     Active Substance: DEXAMETHASONE ACETATE
     Indication: PLASMA CELL MYELOMA
     Route: 042
     Dates: start: 20171019, end: 20171119
  9. DEXAMETHASONE ACETATE [Suspect]
     Active Substance: DEXAMETHASONE ACETATE
     Indication: PLASMA CELL MYELOMA
     Route: 042
     Dates: start: 20171211, end: 20171212
  10. DEXAMETHASONE ACETATE [Suspect]
     Active Substance: DEXAMETHASONE ACETATE
     Indication: PLASMA CELL MYELOMA
     Route: 042
     Dates: start: 20171221, end: 20171222
  11. DEXAMETHASONE ACETATE [Suspect]
     Active Substance: DEXAMETHASONE ACETATE
     Indication: PLASMA CELL MYELOMA
     Route: 042
     Dates: start: 20180113, end: 20180114
  12. DEXAMETHASONE ACETATE [Suspect]
     Active Substance: DEXAMETHASONE ACETATE
     Indication: PLASMA CELL MYELOMA
     Route: 042
     Dates: start: 20171214, end: 20171215
  13. DEXAMETHASONE ACETATE [Suspect]
     Active Substance: DEXAMETHASONE ACETATE
     Indication: PLASMA CELL MYELOMA
     Route: 042
     Dates: start: 20171225, end: 20171225
  14. DEXAMETHASONE ACETATE [Suspect]
     Active Substance: DEXAMETHASONE ACETATE
     Indication: PLASMA CELL MYELOMA
     Route: 042
     Dates: start: 20180110, end: 20180110
  15. DARZALEX [Suspect]
     Active Substance: DARATUMUMAB
     Indication: PLASMA CELL MYELOMA
     Route: 041
  16. DEXAMETHASONE ACETATE [Suspect]
     Active Substance: DEXAMETHASONE ACETATE
     Indication: PLASMA CELL MYELOMA
     Route: 042
     Dates: start: 20171218, end: 20171219

REACTIONS (11)
  - Febrile neutropenia [Recovering/Resolving]
  - Pyrexia [Recovered/Resolved]
  - Liver disorder [Not Recovered/Not Resolved]
  - Vomiting [Recovered/Resolved]
  - Cytomegalovirus infection [Recovering/Resolving]
  - Dyspnoea [Recovered/Resolved]
  - Oral candidiasis [Recovering/Resolving]
  - Infusion related reaction [Recovered/Resolved]
  - White blood cell count decreased [Recovering/Resolving]
  - Mouth haemorrhage [Recovering/Resolving]
  - Chills [Recovered/Resolved]

NARRATIVE: CASE EVENT DATE: 20171211
